FAERS Safety Report 5867886-5 (Version None)
Quarter: 2008Q3

REPORT INFORMATION
  Report Type: 
  Country: None (occurrence: None)
  Receive Date: 20080902
  Receipt Date: 20080707
  Transmission Date: 20090109
  Serious: Yes (Death)
  Sender: FDA-Public Use
  Company Number: US-ABBOTT-08P-163-0461247-00

PATIENT
  Sex: Female
  Weight: 85.352 kg

DRUGS (5)
  1. DEPAKOTE ER [Suspect]
     Indication: MIGRAINE
     Route: 048
     Dates: start: 20070101, end: 20080701
  2. DEPAKOTE ER [Suspect]
     Indication: GRAND MAL CONVULSION
  3. ROPINIROLE HYDROCHLORIDE [Concomitant]
     Indication: RESTLESS LEGS SYNDROME
     Route: 048
     Dates: start: 20080601, end: 20080701
  4. PHENYTOIN [Concomitant]
     Indication: CONVULSION
     Route: 048
     Dates: end: 20080701
  5. CARBAMAZEPINE [Concomitant]
     Indication: CONVULSION
     Dosage: 800 MG DAILY, 400 MG TWICE DAILY
     Route: 048
     Dates: end: 20080701

REACTIONS (1)
  - DEATH [None]
